FAERS Safety Report 5294956-5 (Version None)
Quarter: 2007Q2

REPORT INFORMATION
  Report Type: 
  Country: None (occurrence: None)
  Receive Date: 20070412
  Receipt Date: 20070404
  Transmission Date: 20071010
  Serious: Yes (Hospitalization)
  Sender: FDA-Public Use
  Company Number: US-ROCHE-483355

PATIENT
  Age: 84 Year
  Sex: Female
  Weight: 49.9 kg

DRUGS (1)
  1. XELODA [Suspect]
     Dosage: THE PATIENT WAS GIVEN A PRESCRIPTION FOR XELODA 1500 MG TWICE DAILY FOR 14 DAYS.  SHE COMPLETED 4 C+
     Route: 065
     Dates: start: 20061110, end: 20070115

REACTIONS (7)
  - ATRIOVENTRICULAR BLOCK [None]
  - DRY SKIN [None]
  - DYSPNOEA EXERTIONAL [None]
  - MYOCARDIAL INFARCTION [None]
  - PAIN [None]
  - PALMAR-PLANTAR ERYTHRODYSAESTHESIA SYNDROME [None]
  - PRURITUS [None]
